FAERS Safety Report 21054448 (Version 1)
Quarter: 2022Q3

REPORT INFORMATION
  Report Type: Report from Study
  Country: US (occurrence: US)
  Receive Date: 20220707
  Receipt Date: 20220707
  Transmission Date: 20221027
  Serious: Yes (Other)
  Sender: FDA-Public Use
  Company Number: US-NOVARTISPH-NVSC2022US151001

PATIENT
  Sex: Female

DRUGS (1)
  1. XIIDRA [Suspect]
     Active Substance: LIFITEGRAST
     Indication: Dry eye
     Dosage: UNK UNK, BID
     Route: 047
     Dates: start: 202204

REACTIONS (5)
  - Keratoconus [Unknown]
  - Exposure to SARS-CoV-2 [Unknown]
  - Eye pain [Unknown]
  - Visual impairment [Unknown]
  - Eye irritation [Unknown]
